FAERS Safety Report 6801838-3 (Version None)
Quarter: 2010Q2

REPORT INFORMATION
  Report Type: 
  Country: None (occurrence: None)
  Receive Date: 20100629
  Receipt Date: 20100621
  Transmission Date: 20101027
  Serious: Yes (Death, Other)
  Sender: FDA-Public Use
  Company Number: US-PFIZER INC-2010078136

PATIENT
  Sex: Female

DRUGS (2)
  1. METFORMIN HCL [Suspect]
     Indication: DIABETES MELLITUS
     Dosage: UNK MG
  2. GLIBENCLAMIDE [Suspect]
     Indication: DIABETES MELLITUS
     Dosage: UNK MG

REACTIONS (2)
  - DEATH [None]
  - LIVER DISORDER [None]
